FAERS Safety Report 14539421 (Version 4)
Quarter: 2018Q2

REPORT INFORMATION
  Report Type: Spontaneous
  Country: JP (occurrence: JP)
  Receive Date: 20180216
  Receipt Date: 20180423
  Transmission Date: 20180711
  Serious: Yes (Other)
  Sender: FDA-Public Use
  Company Number: PHJP2018JP002978

PATIENT
  Age: 50 Year
  Sex: Male

DRUGS (6)
  1. FLUDARABINE [Concomitant]
     Active Substance: FLUDARABINE PHOSPHATE
     Indication: BONE MARROW CONDITIONING REGIMEN
     Dosage: UNK
     Route: 065
  2. SANDIMMUN INFUSION [Suspect]
     Active Substance: CYCLOSPORINE
     Indication: PROPHYLAXIS AGAINST GRAFT VERSUS HOST DISEASE
  3. SANDIMMUN INFUSION [Suspect]
     Active Substance: CYCLOSPORINE
     Indication: CORD BLOOD TRANSPLANT THERAPY
     Dosage: UNK
     Route: 041
  4. NEORAL [Suspect]
     Active Substance: CYCLOSPORINE
     Indication: CORD BLOOD TRANSPLANT THERAPY
     Dosage: UNK
     Route: 048
  5. METHOTREXATE. [Suspect]
     Active Substance: METHOTREXATE
     Indication: PROPHYLAXIS AGAINST GRAFT VERSUS HOST DISEASE
     Dosage: UNK
     Route: 065
  6. NEORAL [Suspect]
     Active Substance: CYCLOSPORINE
     Indication: PROPHYLAXIS AGAINST GRAFT VERSUS HOST DISEASE

REACTIONS (12)
  - Posterior reversible encephalopathy syndrome [Recovering/Resolving]
  - Gaze palsy [Recovering/Resolving]
  - Altered state of consciousness [Recovered/Resolved]
  - Blood stem cell transplant failure [Unknown]
  - Product use in unapproved indication [Unknown]
  - Pyrexia [Unknown]
  - Retrograde amnesia [Recovered/Resolved]
  - Memory impairment [Recovered/Resolved]
  - Generalised tonic-clonic seizure [Recovered/Resolved]
  - Pancytopenia [Unknown]
  - Pupillary reflex impaired [Recovering/Resolving]
  - Histiocytosis haematophagic [Recovered/Resolved]
